FAERS Safety Report 23225573 (Version 2)
Quarter: 2023Q4

REPORT INFORMATION
  Report Type: Spontaneous
  Country: RU (occurrence: RU)
  Receive Date: 20231124
  Receipt Date: 20231201
  Transmission Date: 20240110
  Serious: Yes (Death, Other)
  Sender: FDA-Public Use
  Company Number: RU-SERVIER-S23013545

PATIENT

DRUGS (6)
  1. ONCASPAR [Suspect]
     Active Substance: PEGASPARGASE
     Indication: Acute lymphocytic leukaemia
     Dosage: 1850 IU, QD
     Route: 051
     Dates: start: 20231108
  2. DEXAMETHASONE [Concomitant]
     Active Substance: DEXAMETHASONE
     Indication: Acute lymphocytic leukaemia
     Dosage: 11 MG, QD
     Route: 065
     Dates: start: 20231103
  3. ALLOPURINOL [Concomitant]
     Active Substance: ALLOPURINOL
     Indication: Acute lymphocytic leukaemia
     Dosage: 500 MG, QD
     Route: 065
     Dates: start: 20231103
  4. NEXIUM [Concomitant]
     Active Substance: ESOMEPRAZOLE MAGNESIUM
     Indication: Acute lymphocytic leukaemia
     Dosage: 20 MG, QD
     Route: 065
     Dates: start: 20231103
  5. FUROSEMIDE [Concomitant]
     Active Substance: FUROSEMIDE
     Indication: Acute lymphocytic leukaemia
     Dosage: 10 MG, BID
     Route: 065
     Dates: start: 20231103
  6. URSODIOL [Concomitant]
     Active Substance: URSODIOL
     Indication: Acute lymphocytic leukaemia
     Dosage: 500 MG, QD
     Route: 065

REACTIONS (3)
  - Multiple organ dysfunction syndrome [Fatal]
  - Hepatitis [Not Recovered/Not Resolved]
  - Pancreatitis [Not Recovered/Not Resolved]

NARRATIVE: CASE EVENT DATE: 20231109
